FAERS Safety Report 8702532 (Version 3)
Quarter: 2012Q4

REPORT INFORMATION
  Report Type: 
  Country: US (occurrence: US)
  Receive Date: 20120803
  Receipt Date: 20120905
  Transmission Date: 20130627
  Serious: No
  Sender: FDA-Public Use
  Company Number: US-PFIZER INC-2012185883

PATIENT
  Age: 62 Year
  Sex: Female
  Weight: 77.1 kg

DRUGS (5)
  1. LYRICA [Suspect]
     Indication: BACK PAIN
     Dosage: 50 mg, 3x/day
     Route: 048
     Dates: start: 20120604
  2. LYRICA [Suspect]
     Dosage: 100 mg, 3x/day
     Route: 048
     Dates: start: 2012
  3. LYRICA [Suspect]
     Dosage: UNK
     Route: 048
     Dates: start: 201207
  4. OXYCONTIN [Concomitant]
     Indication: BACK PAIN
     Dosage: 10 mg, 2x/day
     Dates: start: 1995
  5. OXYCODONE [Concomitant]
     Indication: BACK PAIN
     Dosage: 15 mg, 4x/day

REACTIONS (2)
  - Weight increased [Unknown]
  - Drug ineffective [Unknown]
